FAERS Safety Report 16804024 (Version 1)
Quarter: 2019Q4

REPORT INFORMATION
  Report Type: Spontaneous
  Country: US (occurrence: US)
  Receive Date: 20190912
  Receipt Date: 20190912
  Transmission Date: 20200122
  Serious: Yes (Hospitalization)
  Sender: FDA-Public Use
  Company Number: None

PATIENT
  Age: 81 Year
  Sex: Male

DRUGS (17)
  1. CARVEDILOL. [Concomitant]
     Active Substance: CARVEDILOL
  2. FINASTERIDE. [Concomitant]
     Active Substance: FINASTERIDE
  3. KLOR-CON M20 [Concomitant]
     Active Substance: POTASSIUM CHLORIDE
  4. PLAVIX [Concomitant]
     Active Substance: CLOPIDOGREL BISULFATE
  5. CAPECITABINE. [Suspect]
     Active Substance: CAPECITABINE
     Indication: COLON CANCER
     Route: 048
     Dates: start: 20190820, end: 20190831
  6. ELIQUIS [Concomitant]
     Active Substance: APIXABAN
  7. AMIODARONE [Concomitant]
     Active Substance: AMIODARONE
  8. ASPIRIN. [Concomitant]
     Active Substance: ASPIRIN
  9. ONDANSETRON [Concomitant]
     Active Substance: ONDANSETRON
  10. PROCHLORPERAZINE. [Concomitant]
     Active Substance: PROCHLORPERAZINE
  11. LASIX [Concomitant]
     Active Substance: FUROSEMIDE
  12. PRAVASTATIN. [Concomitant]
     Active Substance: PRAVASTATIN
  13. RAMIPRIL. [Concomitant]
     Active Substance: RAMIPRIL
  14. DIGOXIN. [Concomitant]
     Active Substance: DIGOXIN
  15. ENTRESTO [Concomitant]
     Active Substance: SACUBITRIL\VALSARTAN
  16. NOVOLOG [Concomitant]
     Active Substance: INSULIN ASPART
  17. LEVEMIR [Concomitant]
     Active Substance: INSULIN DETEMIR

REACTIONS (1)
  - Fall [None]

NARRATIVE: CASE EVENT DATE: 20190831
